FAERS Safety Report 22033420 (Version 1)
Quarter: 2023Q1

REPORT INFORMATION
  Report Type: Spontaneous
  Country: US (occurrence: US)
  Receive Date: 20230224
  Receipt Date: 20230224
  Transmission Date: 20230418
  Serious: No
  Sender: FDA-Public Use
  Company Number: US-PFIZER INC-202300078361

PATIENT
  Age: 20 Year
  Sex: Male

DRUGS (4)
  1. EUCRISA [Suspect]
     Active Substance: CRISABOROLE
     Indication: Dermatitis atopic
     Dosage: UNK
  2. PROTOPIC [Suspect]
     Active Substance: TACROLIMUS
     Indication: Dermatitis atopic
     Dosage: UNK
     Route: 061
  3. ELIDEL [Suspect]
     Active Substance: PIMECROLIMUS
     Indication: Dermatitis atopic
     Dosage: UNK
     Route: 061
  4. DUPIXENT [Suspect]
     Active Substance: DUPILUMAB
     Indication: Dermatitis atopic
     Dosage: UNK

REACTIONS (1)
  - Treatment failure [Unknown]
